FAERS Safety Report 7339152-2 (Version None)
Quarter: 2011Q1

REPORT INFORMATION
  Report Type: 
  Country: None (occurrence: None)
  Receive Date: 20110308
  Receipt Date: 20110304
  Transmission Date: 20110831
  Serious: Yes (Life-Threatening, Hospitalization, Other)
  Sender: FDA-Public Use
  Company Number: PHHY2010CA04349

PATIENT
  Sex: Male

DRUGS (1)
  1. SANDOSTATIN LAR [Suspect]
     Indication: HEPATIC CIRRHOSIS
     Dosage: 30 MG, QMO
     Route: 030
     Dates: start: 20100122

REACTIONS (11)
  - HEPATIC CIRRHOSIS [None]
  - TERMINAL STATE [None]
  - HAEMATOCHEZIA [None]
  - DISEASE PROGRESSION [None]
  - MYOCARDIAL INFARCTION [None]
  - MALAISE [None]
  - ANAEMIA [None]
  - GAIT DISTURBANCE [None]
  - ASTHENIA [None]
  - FAECAL INCONTINENCE [None]
  - OEDEMA PERIPHERAL [None]
